FAERS Safety Report 10817700 (Version 1)
Quarter: 2015Q1

REPORT INFORMATION
  Report Type: Spontaneous
  Country: BR (occurrence: BR)
  Receive Date: 20150218
  Receipt Date: 20150218
  Transmission Date: 20150721
  Serious: Yes (Other)
  Sender: FDA-Public Use
  Company Number: BR-BRISTOL-MYERS SQUIBB COMPANY-BMS-2015-008091

PATIENT
  Sex: Female
  Weight: 69 kg

DRUGS (1)
  1. MEGESTAT [Suspect]
     Active Substance: MEGESTROL ACETATE
     Indication: LUNG NEOPLASM MALIGNANT
     Dosage: N/I
     Route: 065

REACTIONS (3)
  - Metastases to bone [Unknown]
  - Pruritus generalised [None]
  - Pruritus [Unknown]
